FAERS Safety Report 9638149 (Version 1)
Quarter: 2013Q4

REPORT INFORMATION
  Report Type: Spontaneous
  Country: US (occurrence: US)
  Receive Date: 20131022
  Receipt Date: 20131022
  Transmission Date: 20140711
  Serious: No
  Sender: FDA-Public Use
  Company Number: US-PFIZER INC-2013298188

PATIENT
  Age: 66 Year
  Sex: Female

DRUGS (4)
  1. AMLODIPINE BESILATE [Suspect]
     Indication: HYPERTENSION
     Dosage: 10 MG, 1X/DAY
     Route: 048
     Dates: start: 201310, end: 201310
  2. LISINOPRIL [Concomitant]
     Dosage: UNK
  3. TRAMADOL [Concomitant]
     Dosage: UNK
  4. CARVEDILOL [Concomitant]
     Dosage: UNK

REACTIONS (1)
  - Oedema peripheral [Not Recovered/Not Resolved]
